FAERS Safety Report 16417403 (Version 2)
Quarter: 2019Q3

REPORT INFORMATION
  Report Type: Report from Study
  Country: GB (occurrence: GB)
  Receive Date: 20190611
  Receipt Date: 20190708
  Transmission Date: 20191004
  Serious: Yes (Hospitalization, Other)
  Sender: FDA-Public Use
  Company Number: GB-JNJFOC-20190609908

PATIENT
  Age: 7 Decade
  Sex: Male

DRUGS (2)
  1. HEPARIN [Concomitant]
     Active Substance: HEPARIN SODIUM
     Indication: PSORIASIS
     Route: 065
  2. STELARA [Suspect]
     Active Substance: USTEKINUMAB
     Indication: PSORIASIS
     Route: 058
     Dates: start: 2014

REACTIONS (6)
  - Limb injury [Unknown]
  - Dementia Alzheimer^s type [Unknown]
  - Hypoacusis [Unknown]
  - Psoriasis [Unknown]
  - Hand fracture [Unknown]
  - Paraesthesia [Unknown]

NARRATIVE: CASE EVENT DATE: 201903
